FAERS Safety Report 22042714 (Version 1)
Quarter: 2023Q1

REPORT INFORMATION
  Report Type: Spontaneous
  Country: FR (occurrence: FR)
  Receive Date: 20230228
  Receipt Date: 20230228
  Transmission Date: 20230417
  Serious: Yes (Other)
  Sender: FDA-Public Use
  Company Number: None

PATIENT
  Age: 72 Year
  Sex: Male
  Weight: 90 kg

DRUGS (1)
  1. KEPPRA [Suspect]
     Active Substance: LEVETIRACETAM
     Indication: Epilepsy
     Dosage: 500 MG 2X/J
     Route: 048
     Dates: start: 20220319, end: 20230206

REACTIONS (2)
  - Suicidal ideation [Recovering/Resolving]
  - Affective disorder [Recovering/Resolving]

NARRATIVE: CASE EVENT DATE: 20220301
